FAERS Safety Report 7824385-9 (Version None)
Quarter: 2011Q4

REPORT INFORMATION
  Report Type: 
  Country: None (occurrence: None)
  Receive Date: 20111019
  Receipt Date: 20111018
  Transmission Date: 20120403
  Serious: Yes (Death)
  Sender: FDA-Public Use
  Company Number: AU-B.I. PHARMACEUTICALS,INC./RIDGEFIELD-2011-AU-01845AU

PATIENT
  Age: 71 Year
  Sex: Male

DRUGS (14)
  1. EXFORGE [Concomitant]
  2. FORMET [Concomitant]
  3. PANAMAX [Concomitant]
  4. PRADAXA [Suspect]
     Indication: ATRIAL FIBRILLATION
     Dosage: 300 MG
     Dates: start: 20110714, end: 20111014
  5. PERINDOPRIL ERBUMINE [Concomitant]
  6. GAVISCON [Concomitant]
  7. MINAX [Concomitant]
  8. ENDEP [Concomitant]
  9. NOVOMIX [Concomitant]
  10. DIGOXIN [Concomitant]
  11. NITROLINGUAL PUMPSPRAY [Concomitant]
  12. OXYCONTIN [Concomitant]
  13. OXYCODONE HCL [Concomitant]
  14. FUROSEMIDE [Concomitant]

REACTIONS (1)
  - MYOCARDIAL INFARCTION [None]
